FAERS Safety Report 5938114-7 (Version None)
Quarter: 2008Q4

REPORT INFORMATION
  Report Type: 
  Country: None (occurrence: None)
  Receive Date: 20081031
  Receipt Date: 20081022
  Transmission Date: 20090506
  Serious: Yes (Hospitalization)
  Sender: FDA-Public Use
  Company Number: PT-BRISTOL-MYERS SQUIBB COMPANY-14372460

PATIENT
  Age: 72 Year
  Sex: Female

DRUGS (3)
  1. CETUXIMAB [Suspect]
     Indication: BREAST CANCER METASTATIC
     Dosage: THERAPY STARTED ON 19-DEC-2007.
     Route: 041
     Dates: start: 20070903, end: 20080903
  2. CISPLATIN [Suspect]
     Indication: BREAST CANCER METASTATIC
     Dosage: THERAPY STARTED ON 19-DEC-2007.
     Route: 041
     Dates: start: 20080402, end: 20080402
  3. VINORELBINE [Suspect]
     Indication: BREAST CANCER METASTATIC
     Dates: start: 20080910, end: 20080910

REACTIONS (1)
  - ANAEMIA [None]
